FAERS Safety Report 10677978 (Version 2)
Quarter: 2015Q1

REPORT INFORMATION
  Report Type: Spontaneous
  Country: US (occurrence: None)
  Receive Date: 20141223
  Receipt Date: 20150108
  Transmission Date: 20150720
  Serious: No
  Sender: FDA-Public Use
  Company Number: 2014-US-016573

PATIENT
  Sex: Female
  Weight: 54.4 kg

DRUGS (4)
  1. FLUOXETINE [Concomitant]
     Active Substance: FLUOXETINE\FLUOXETINE HYDROCHLORIDE
  2. DEXTROAMPHETAMINE (DEXAMFETAMINE) [Concomitant]
  3. XYREM [Suspect]
     Active Substance: SODIUM OXYBATE
     Indication: NARCOLEPSY
     Route: 048
     Dates: start: 201408
  4. XYREM [Suspect]
     Active Substance: SODIUM OXYBATE
     Indication: CATAPLEXY
     Route: 048
     Dates: start: 201408

REACTIONS (4)
  - Autoimmune disorder [None]
  - Condition aggravated [None]
  - Tooth infection [None]
  - Off label use [None]

NARRATIVE: CASE EVENT DATE: 2014
